FAERS Safety Report 10193056 (Version 2)
Quarter: 2014Q2

REPORT INFORMATION
  Report Type: Spontaneous
  Country: US (occurrence: US)
  Receive Date: 20140524
  Receipt Date: 20140627
  Transmission Date: 20141212
  Serious: Yes (Other)
  Sender: FDA-Public Use
  Company Number: US-LUNDBECK-DKLU1099558

PATIENT
  Sex: Female

DRUGS (2)
  1. SABRIL     (TABLET) [Suspect]
     Indication: TEMPORAL LOBE EPILEPSY
     Route: 048
     Dates: start: 20131227
  2. SABRIL     (TABLET) [Suspect]
     Indication: EPILEPSY

REACTIONS (3)
  - Visual impairment [Unknown]
  - Blood glucose increased [Unknown]
  - Drug ineffective [Unknown]
